FAERS Safety Report 20874090 (Version 1)
Quarter: 2022Q2

REPORT INFORMATION
  Report Type: Spontaneous
  Country: JP (occurrence: JP)
  Receive Date: 20220525
  Receipt Date: 20220525
  Transmission Date: 20220721
  Serious: Yes (Other)
  Sender: FDA-Public Use
  Company Number: JP-ABBVIE-22K-087-4408424-00

PATIENT

DRUGS (1)
  1. HUMIRA [Suspect]
     Active Substance: ADALIMUMAB
     Indication: Scleritis
     Route: 058

REACTIONS (4)
  - Posterior capsule opacification [Unknown]
  - Retinal degeneration [Unknown]
  - Glaucoma [Unknown]
  - Off label use [Unknown]
